FAERS Safety Report 9356539 (Version 1)
Quarter: 2013Q2

REPORT INFORMATION
  Report Type: Spontaneous
  Country: US (occurrence: US)
  Receive Date: 20130619
  Receipt Date: 20130619
  Transmission Date: 20140414
  Serious: Yes (Other)
  Sender: FDA-Public Use
  Company Number: US-UCBSA-078179

PATIENT
  Age: 35 Year
  Sex: Female

DRUGS (2)
  1. KEPPRA [Suspect]
     Indication: CONVULSION
     Dates: start: 2009
  2. KEPPRA [Suspect]
     Indication: CONVULSION
     Dates: start: 2004, end: 2009

REACTIONS (3)
  - Petit mal epilepsy [Unknown]
  - Premature delivery [Unknown]
  - Pregnancy [Recovered/Resolved]
